FAERS Safety Report 10180266 (Version 1)
Quarter: 2014Q2

REPORT INFORMATION
  Report Type: Spontaneous
  Country: GB (occurrence: None)
  Receive Date: 20140515
  Receipt Date: 20140515
  Transmission Date: 20141212
  Serious: Yes (Other)
  Sender: FDA-Public Use
  Company Number: AUR-APL-2014-05634

PATIENT
  Age: 53 Year
  Sex: Male

DRUGS (1)
  1. TERBINAFINE (TERBINAFINE) [Suspect]
     Indication: PRODUCT USED FOR UNKNOWN INDICATION
     Route: 048
     Dates: start: 20140109, end: 20140212

REACTIONS (2)
  - Dysgeusia [None]
  - Eating disorder [None]
